FAERS Safety Report 7465832-4 (Version None)
Quarter: 2011Q2

REPORT INFORMATION
  Report Type: 
  Country: None (occurrence: None)
  Receive Date: 20110509
  Receipt Date: 20100421
  Transmission Date: 20111010
  Serious: No
  Sender: FDA-Public Use
  Company Number: US-ALEXION-A201000466

PATIENT

DRUGS (6)
  1. CYCLOSPORINE [Suspect]
     Dosage: UNK
     Dates: end: 20100420
  2. AMLODIPINE BESYLATE [Concomitant]
     Dosage: UNK
     Dates: end: 20100301
  3. SOLIRIS [Suspect]
     Dosage: 900 MG, Q2W
     Route: 042
  4. PENTAMIDINE ISETHIONATE [Concomitant]
     Dosage: UNK
     Dates: end: 20100420
  5. SOLIRIS [Suspect]
     Indication: PAROXYSMAL NOCTURNAL HAEMOGLOBINURIA
     Dosage: UNK
     Route: 042
     Dates: start: 20100209
  6. MAGNESIUM [Concomitant]
     Dosage: UNK
     Dates: end: 20100420

REACTIONS (1)
  - GINGIVAL BLEEDING [None]
